FAERS Safety Report 5294691-3 (Version None)
Quarter: 2007Q2

REPORT INFORMATION
  Report Type: 
  Country: None (occurrence: None)
  Receive Date: 20070409
  Receipt Date: 20070409
  Transmission Date: 20071010
  Serious: Yes (Life-Threatening)
  Sender: FDA-Public Use
  Company Number: None

PATIENT
  Age: 76 Year
  Sex: Male

DRUGS (1)
  1. ENALAPRIL MALEATE [Suspect]

REACTIONS (3)
  - DYSPHAGIA [None]
  - EPIGLOTTIC OEDEMA [None]
  - INCREASED UPPER AIRWAY SECRETION [None]
